FAERS Safety Report 25369526 (Version 1)
Quarter: 2025Q2

REPORT INFORMATION
  Report Type: Spontaneous
  Country: AU (occurrence: AU)
  Receive Date: 20250528
  Receipt Date: 20250528
  Transmission Date: 20250717
  Serious: Yes (Hospitalization, Other)
  Sender: CIPHER
  Company Number: AU-CIPHER-2025-AU-000002

PATIENT
  Age: 61 Year
  Sex: Male

DRUGS (2)
  1. intravenous (IV) fluids [Concomitant]
     Dosage: FLUIDS AT A RATE OF 3L/DAY FOR THE FIRST 4 DAYS
     Route: 042
  2. FENOFIBRATE [Suspect]
     Active Substance: FENOFIBRATE
     Indication: Medication error
     Route: 048

REACTIONS (2)
  - Medication error [Recovered/Resolved]
  - Nephropathy [Recovered/Resolved]
